FAERS Safety Report 5391682-9 (Version None)
Quarter: 2007Q3

REPORT INFORMATION
  Report Type: 
  Country: None (occurrence: None)
  Receive Date: 20070717
  Receipt Date: 20070705
  Transmission Date: 20080115
  Serious: Yes (Other)
  Sender: FDA-Public Use
  Company Number: S07-NJD-01850-01

PATIENT
  Age: 18 Year
  Sex: Female

DRUGS (2)
  1. CITALOPRAM HYDROBROMIDE [Suspect]
     Dates: start: 20070410, end: 20070413
  2. CITALOPRAM HYDROBROMIDE [Suspect]
     Dosage: 10 MG QD PO
     Route: 048
     Dates: start: 20070101

REACTIONS (6)
  - DIZZINESS [None]
  - METABOLIC DISORDER [None]
  - NAUSEA [None]
  - PULMONARY HAEMORRHAGE [None]
  - VISION BLURRED [None]
  - VOMITING [None]
